FAERS Safety Report 20753284 (Version 3)
Quarter: 2022Q2

REPORT INFORMATION
  Report Type: Spontaneous
  Country: US (occurrence: None)
  Receive Date: 20220426
  Receipt Date: 20220608
  Transmission Date: 20220720
  Serious: No
  Sender: FDA-Public Use
  Company Number: 2022A158748

PATIENT
  Age: 24356 Day
  Sex: Male
  Weight: 88.5 kg

DRUGS (1)
  1. BUDESONIDE\FORMOTEROL\GLYCOPYRRONIUM [Suspect]
     Active Substance: BUDESONIDE\FORMOTEROL\GLYCOPYRRONIUM
     Indication: Chronic obstructive pulmonary disease
     Dosage: 2, TWO TIMES A DAY
     Route: 055
     Dates: start: 202112

REACTIONS (3)
  - Feeling abnormal [Not Recovered/Not Resolved]
  - Product dose omission issue [Not Recovered/Not Resolved]
  - Device delivery system issue [Unknown]

NARRATIVE: CASE EVENT DATE: 20220413
